FAERS Safety Report 7704680-4 (Version None)
Quarter: 2011Q3

REPORT INFORMATION
  Report Type: 
  Country: None (occurrence: None)
  Receive Date: 20110823
  Receipt Date: 20110817
  Transmission Date: 20111222
  Serious: Yes (Death)
  Sender: FDA-Public Use
  Company Number: US-SANTEN INC.-INC-11-000021

PATIENT
  Age: 96 Year
  Sex: Female

DRUGS (1)
  1. BETIMOL [Suspect]
     Indication: OCULAR HYPERTENSION
     Route: 061

REACTIONS (1)
  - DEATH [None]
